FAERS Safety Report 4865533-2 (Version None)
Quarter: 2005Q4

REPORT INFORMATION
  Report Type: 
  Country: None (occurrence: None)
  Receive Date: 20051223
  Receipt Date: 20051213
  Transmission Date: 20060501
  Serious: Yes (Other)
  Sender: FDA-Public Use
  Company Number: KE-GLAXOSMITHKLINE-B0391716B

PATIENT

DRUGS (3)
  1. NEVIRAPINE [Suspect]
     Indication: ANTIVIRAL PROPHYLAXIS
     Dosage: 2MGK SINGLE DOSE
     Route: 048
     Dates: start: 20041112
  2. COMBIVIR [Suspect]
     Indication: ANTIVIRAL PROPHYLAXIS
     Dosage: 1TAB TWICE PER DAY
     Dates: start: 20040924
  3. NEVIRAPINE [Suspect]
     Dosage: 200MG SEE DOSAGE TEXT
     Dates: start: 20040924

REACTIONS (3)
  - BLOOD CREATININE ABNORMAL [None]
  - DRUG EXPOSURE DURING PREGNANCY [None]
  - DRUG EXPOSURE VIA BREAST MILK [None]
